FAERS Safety Report 9371880 (Version 1)
Quarter: 2013Q2

REPORT INFORMATION
  Report Type: Spontaneous
  Country: US (occurrence: US)
  Receive Date: 20130627
  Receipt Date: 20130627
  Transmission Date: 20140414
  Serious: Yes (Other)
  Sender: FDA-Public Use
  Company Number: US-BAYER-2013-075602

PATIENT
  Sex: Male
  Weight: 75.74 kg

DRUGS (4)
  1. ALEVE CAPLET [Suspect]
     Indication: LOCAL SWELLING
     Dosage: 3 DF, ONCE
     Route: 048
     Dates: start: 2009, end: 2009
  2. ALEVE CAPLET [Suspect]
     Indication: PAIN IN EXTREMITY
  3. TAMSULOSIN [Concomitant]
  4. ASPIRIN [Concomitant]
     Dosage: OCCASIONALLY

REACTIONS (3)
  - Swelling face [Not Recovered/Not Resolved]
  - Hypertension [Not Recovered/Not Resolved]
  - Erythema [Not Recovered/Not Resolved]
